FAERS Safety Report 13837645 (Version 1)
Quarter: 2017Q3

REPORT INFORMATION
  Report Type: Spontaneous
  Country: DE (occurrence: DE)
  Receive Date: 20170806
  Receipt Date: 20170806
  Transmission Date: 20171127
  Serious: Yes (Other)
  Sender: FDA-Public Use
  Company Number: DE-TORRENT-00006801

PATIENT
  Age: 66 Year
  Sex: Male

DRUGS (5)
  1. PANTOPRAZOLE [Suspect]
     Active Substance: PANTOPRAZOLE
  2. INSULIN [Concomitant]
     Active Substance: INSULIN NOS
  3. XELEVIA [Concomitant]
     Active Substance: SITAGLIPTIN PHOSPHATE
  4. GLIMEPIRID [Concomitant]
     Active Substance: GLIMEPIRIDE
  5. FORMATRIS [Concomitant]
     Active Substance: FORMOTEROL FUMARATE

REACTIONS (2)
  - Dyspnoea [Unknown]
  - Respiratory distress [Unknown]

NARRATIVE: CASE EVENT DATE: 2017
